FAERS Safety Report 9789399 (Version 2)
Quarter: 2014Q1

REPORT INFORMATION
  Report Type: Report from Study
  Country: DE (occurrence: DE)
  Receive Date: 20131231
  Receipt Date: 20140329
  Transmission Date: 20141002
  Serious: Yes (Hospitalization)
  Sender: FDA-Public Use
  Company Number: DE-ABBVIE-13P-062-1182822-00

PATIENT
  Age: 81 Year
  Sex: Male
  Weight: 57 kg

DRUGS (2)
  1. ZEMPLAR [Suspect]
     Indication: HYPERTENSIVE NEPHROPATHY
     Dosage: EACH MONDAY AND FRIDAY 5 MICROGRAM
     Dates: start: 20120609
  2. MARCUMAR [Suspect]
     Indication: PRODUCT USED FOR UNKNOWN INDICATION

REACTIONS (6)
  - Investigation [Unknown]
  - Haematuria [Recovered/Resolved]
  - Urinary retention [Recovered/Resolved]
  - Tricuspid valve incompetence [Unknown]
  - Folate deficiency [Recovered/Resolved]
  - Mitral valve incompetence [Unknown]
